FAERS Safety Report 16318381 (Version 1)
Quarter: 2019Q2

REPORT INFORMATION
  Report Type: Spontaneous
  Country: US (occurrence: US)
  Receive Date: 20190409
  Receipt Date: 20190409
  Transmission Date: 20190711
  Serious: No
  Sender: FDA-Public Use
  Company Number: None

PATIENT
  Age: 80 Year
  Sex: Female
  Weight: 63.5 kg

DRUGS (1)
  1. PENNSAID [Suspect]
     Active Substance: DICLOFENAC SODIUM
     Indication: OSTEOARTHRITIS
     Dosage: ?          OTHER DOSE:1/20 GRAM/MG;?
     Route: 061

REACTIONS (3)
  - Headache [None]
  - Hypertension [None]
  - Palpitations [None]

NARRATIVE: CASE EVENT DATE: 20190318
